FAERS Safety Report 16685755 (Version 2)
Quarter: 2019Q4

REPORT INFORMATION
  Report Type: Report from Study
  Country: US (occurrence: US)
  Receive Date: 20190809
  Receipt Date: 20191224
  Transmission Date: 20200122
  Serious: Yes (Other)
  Sender: FDA-Public Use
  Company Number: US-SA-2019SA212239

PATIENT
  Age: 70 Year
  Sex: Female

DRUGS (9)
  1. TERIFLUNOMIDE. [Suspect]
     Active Substance: TERIFLUNOMIDE
     Indication: MULTIPLE SCLEROSIS
     Dosage: 14 MG, QD
     Route: 048
     Dates: start: 20190704
  2. IBUPROFEN. [Concomitant]
     Active Substance: IBUPROFEN
  3. ZOSTAVAX [Concomitant]
     Active Substance: VARICELLA-ZOSTER VIRUS STRAIN OKA/MERCK LIVE ANTIGEN
  4. TRIAMCINOLON [TRIAMCINOLONE] [Concomitant]
  5. MAGNESIUM SULFATE. [Concomitant]
     Active Substance: MAGNESIUM SULFATE
  6. OXYBUTYNIN. [Concomitant]
     Active Substance: OXYBUTYNIN CHLORIDE
  7. GARLIC [ALLIUM SATIVUM] [Concomitant]
     Active Substance: GARLIC
  8. COLLAGEN [Concomitant]
     Active Substance: COLLAGEN
  9. OXYCODONE HYDROCHLORIDE. [Concomitant]
     Active Substance: OXYCODONE HYDROCHLORIDE

REACTIONS (17)
  - Multiple sclerosis relapse [Recovered/Resolved]
  - Musculoskeletal disorder [Recovered/Resolved]
  - Constipation [Recovering/Resolving]
  - Abdominal pain upper [Not Recovered/Not Resolved]
  - Dehydration [Recovered/Resolved]
  - Faeces discoloured [Not Recovered/Not Resolved]
  - Regurgitation [Not Recovered/Not Resolved]
  - Diarrhoea [Recovered/Resolved]
  - Urinary incontinence [Recovered/Resolved]
  - Feeling hot [Recovered/Resolved]
  - Dyschezia [Recovering/Resolving]
  - Diarrhoea [Not Recovered/Not Resolved]
  - Feeling abnormal [Recovered/Resolved]
  - Anal incontinence [Recovered/Resolved]
  - Lethargy [Recovered/Resolved]
  - Abnormal faeces [Not Recovered/Not Resolved]
  - Gait disturbance [Recovered/Resolved]

NARRATIVE: CASE EVENT DATE: 2019
